FAERS Safety Report 16597325 (Version 2)
Quarter: 2019Q3

REPORT INFORMATION
  Report Type: Spontaneous
  Country: US (occurrence: US)
  Receive Date: 20190719
  Receipt Date: 20190913
  Transmission Date: 20191004
  Serious: No
  Sender: FDA-Public Use
  Company Number: US-ASTRAZENECA-2019SE90037

PATIENT
  Weight: 125.6 kg

DRUGS (3)
  1. FASLODEX [Suspect]
     Active Substance: FULVESTRANT
     Route: 030
     Dates: start: 20181115
  2. IBRANCE [Suspect]
     Active Substance: PALBOCICLIB
     Route: 048
     Dates: start: 20181115
  3. XGEVA [Concomitant]
     Active Substance: DENOSUMAB

REACTIONS (11)
  - Eyelid margin crusting [Unknown]
  - Hair disorder [Not Recovered/Not Resolved]
  - Product dose omission [Unknown]
  - Muscle strain [Unknown]
  - Muscle spasms [Unknown]
  - Nausea [Unknown]
  - Fibrin D dimer increased [Unknown]
  - Dry skin [Unknown]
  - Fatigue [Unknown]
  - Skin disorder [Not Recovered/Not Resolved]
  - Circumstance or information capable of leading to device use error [Unknown]
